FAERS Safety Report 8234251-5 (Version None)
Quarter: 2012Q1

REPORT INFORMATION
  Report Type: 
  Country: None (occurrence: None)
  Receive Date: 20120326
  Receipt Date: 20120322
  Transmission Date: 20120608
  Serious: Yes (Hospitalization, Other)
  Sender: FDA-Public Use
  Company Number: US-PFIZER INC-2012075483

PATIENT
  Sex: Female
  Weight: 63.492 kg

DRUGS (1)
  1. PROTONIX [Suspect]
     Indication: GASTRIC BYPASS
     Dosage: 40 MG, 2X/DAY
     Dates: start: 20030101

REACTIONS (3)
  - ULCER HAEMORRHAGE [None]
  - LOSS OF CONSCIOUSNESS [None]
  - PAIN [None]
